FAERS Safety Report 15358331 (Version 1)
Quarter: 2018Q3

REPORT INFORMATION
  Report Type: Spontaneous
  Country: US (occurrence: US)
  Receive Date: 20180906
  Receipt Date: 20180906
  Transmission Date: 20181010
  Serious: No
  Sender: FDA-Public Use
  Company Number: US-PERRIGO-18US005016

PATIENT
  Age: 50 Year
  Sex: Female

DRUGS (8)
  1. PROBIOTICS NOS [Concomitant]
     Active Substance: PROBIOTICS NOS
     Indication: SUPPLEMENTATION THERAPY
     Dosage: UNK
     Route: 065
  2. EVAMIST [Suspect]
     Active Substance: ESTRADIOL
     Dosage: 1.53 MG, BID
     Route: 062
  3. VITAMINS NOS [Concomitant]
     Active Substance: VITAMINS
     Indication: SUPPLEMENTATION THERAPY
     Dosage: UNK
     Route: 048
  4. EVAMIST [Suspect]
     Active Substance: ESTRADIOL
     Indication: HOT FLUSH
     Dosage: 1.53 MG, QHS
     Route: 062
     Dates: start: 2015
  5. ALLERGY MEDICATION [Concomitant]
     Active Substance: DIPHENHYDRAMINE HYDROCHLORIDE
     Indication: MULTIPLE ALLERGIES
     Dosage: ALLERGY SHOTS Q2 WEEKS
     Route: 058
     Dates: start: 2013
  6. EVAMIST [Suspect]
     Active Substance: ESTRADIOL
     Route: 062
  7. PLAQUENIL                          /00072602/ [Concomitant]
     Active Substance: HYDROXYCHLOROQUINE DIPHOSPHATE
     Indication: CUTANEOUS LUPUS ERYTHEMATOSUS
     Dosage: UNK
     Route: 065
  8. ANTIHISTAMINES [Concomitant]
     Active Substance: ANTIHISTAMINES NOS
     Indication: MULTIPLE ALLERGIES
     Dosage: UNK, PRN
     Route: 065

REACTIONS (4)
  - Inappropriate schedule of drug administration [Recovered/Resolved]
  - Application site rash [Recovering/Resolving]
  - Breast tenderness [Recovered/Resolved]
  - Drug effect incomplete [Unknown]
